FAERS Safety Report 23863699 (Version 1)
Quarter: 2024Q2

REPORT INFORMATION
  Report Type: Spontaneous
  Country: GB (occurrence: GB)
  Receive Date: 20240516
  Receipt Date: 20240516
  Transmission Date: 20240716
  Serious: Yes (Death, Other)
  Sender: FDA-Public Use
  Company Number: GB-002147023-NVSC2024GB099733

PATIENT
  Age: 27 Year
  Sex: Male

DRUGS (2)
  1. ASCIMINIB [Suspect]
     Active Substance: ASCIMINIB
     Indication: Chronic myeloid leukaemia transformation
     Dosage: 40 MG, BID
     Route: 048
  2. ASCIMINIB [Suspect]
     Active Substance: ASCIMINIB
     Dosage: 200 MG, BID
     Route: 048

REACTIONS (3)
  - Chronic myeloid leukaemia transformation [Fatal]
  - Malignant neoplasm progression [Fatal]
  - Product use in unapproved indication [Unknown]
